FAERS Safety Report 14700487 (Version 2)
Quarter: 2018Q2

REPORT INFORMATION
  Report Type: Spontaneous
  Country: US (occurrence: US)
  Receive Date: 20180330
  Receipt Date: 20180409
  Transmission Date: 20180711
  Serious: Yes (Death, Other)
  Sender: FDA-Public Use
  Company Number: US-JNJFOC-20180337692

PATIENT

DRUGS (1)
  1. RISPERIDONE. [Suspect]
     Active Substance: RISPERIDONE
     Indication: DEMENTIA
     Dosage: LOW DOSE OF LESS THAN 0.5 MG, MEDIUM DOSE OF 0.5- 2 MG AND HIGH DOSE OF GREATER THAN 2 MG
     Route: 065

REACTIONS (8)
  - Metabolic disorder [Unknown]
  - Cerebrovascular accident [Unknown]
  - Adverse event [Unknown]
  - Drug ineffective [Unknown]
  - Cardiac death [Fatal]
  - Fall [Unknown]
  - Cardiovascular disorder [Unknown]
  - Extrapyramidal disorder [Unknown]
